FAERS Safety Report 19857784 (Version 1)
Quarter: 2021Q3

REPORT INFORMATION
  Report Type: Spontaneous
  Country: DE (occurrence: DE)
  Receive Date: 20210921
  Receipt Date: 20210921
  Transmission Date: 20211014
  Serious: Yes (Congenital Anomaly, Other)
  Sender: FDA-Public Use
  Company Number: DE-JNJFOC-20210925844

PATIENT
  Age: 1 Day
  Sex: Female

DRUGS (2)
  1. REMICADE [Suspect]
     Active Substance: INFLIXIMAB
     Indication: CROHN^S DISEASE
     Route: 064
  2. PAROXETIN [PAROXETINE] [Suspect]
     Active Substance: PAROXETINE
     Indication: DEPRESSION
     Dosage: 30 [MG/D (BIS 20 MG/D) ]/ AFTER GW 20 DOSE REDUCTION TO 20 MG DAILY
     Route: 064
     Dates: start: 20191229, end: 20200928

REACTIONS (4)
  - Small for dates baby [Unknown]
  - Foetal exposure during pregnancy [Recovered/Resolved]
  - Eyelid ptosis congenital [Not Recovered/Not Resolved]
  - Marcus Gunn syndrome [Unknown]

NARRATIVE: CASE EVENT DATE: 20200928
